FAERS Safety Report 7369430-2 (Version None)
Quarter: 2011Q1

REPORT INFORMATION
  Report Type: 
  Country: None (occurrence: None)
  Receive Date: 20110323
  Receipt Date: 20110311
  Transmission Date: 20110831
  Serious: Yes (Death)
  Sender: FDA-Public Use
  Company Number: MX-SANOFI-AVENTIS-2011SA015330

PATIENT
  Age: 65 Year
  Sex: Female

DRUGS (1)
  1. INSULIN GLARGINE [Suspect]
     Route: 058
     Dates: start: 20080101, end: 20101224

REACTIONS (1)
  - MYOCARDIAL INFARCTION [None]
